FAERS Safety Report 6650322-9 (Version None)
Quarter: 2010Q1

REPORT INFORMATION
  Report Type: 
  Country: None (occurrence: None)
  Receive Date: 20100325
  Receipt Date: 20100315
  Transmission Date: 20100710
  Serious: Yes (Death, Congenital Anomaly)
  Sender: FDA-Public Use
  Company Number: FR-ASTRAZENECA-2010SE11134

PATIENT
  Age: 0 Week
  Sex: Female

DRUGS (5)
  1. NEXIUM [Suspect]
     Route: 064
     Dates: start: 20091130, end: 20091220
  2. MOTILIUM [Suspect]
     Route: 064
     Dates: start: 20091113, end: 20091213
  3. PRIMPERAN INJ [Suspect]
     Route: 064
     Dates: start: 20091130, end: 20091213
  4. SPASFON [Suspect]
     Route: 064
     Dates: start: 20091130, end: 20091220
  5. VOGALENE [Suspect]
     Dosage: AS REQUIRED
     Route: 064

REACTIONS (1)
  - LIMB REDUCTION DEFECT [None]
